FAERS Safety Report 8311215-4 (Version None)
Quarter: 2012Q2

REPORT INFORMATION
  Report Type: 
  Country: None (occurrence: None)
  Receive Date: 20120423
  Receipt Date: 20120411
  Transmission Date: 20120825
  Serious: Yes (Other)
  Sender: FDA-Public Use
  Company Number: DSA_56135_2012

PATIENT
  Age: 78 Year
  Sex: Male
  Weight: 74.8435 kg

DRUGS (2)
  1. CARAC [Suspect]
     Indication: BASOSQUAMOUS CARCINOMA OF SKIN
     Dosage: DAILY (DOSE NOT SPECIFIED) TOPICAL)
     Route: 061
     Dates: start: 20111201
  2. ANTIHYPERTENSIVES [Concomitant]

REACTIONS (2)
  - NEUROENDOCRINE CARCINOMA OF THE SKIN [None]
  - APPLICATION SITE REACTION [None]
